FAERS Safety Report 6580490-9 (Version None)
Quarter: 2010Q1

REPORT INFORMATION
  Report Type: 
  Country: None (occurrence: None)
  Receive Date: 20100212
  Receipt Date: 20100208
  Transmission Date: 20100710
  Serious: Yes (Other)
  Sender: FDA-Public Use
  Company Number: CHPA2010JP02726

PATIENT

DRUGS (1)
  1. PRIVINA (NCH) [Suspect]
     Dosage: UNK, UNK

REACTIONS (1)
  - URINARY RETENTION [None]
